FAERS Safety Report 7658551-2 (Version None)
Quarter: 2011Q3

REPORT INFORMATION
  Report Type: 
  Country: None (occurrence: None)
  Receive Date: 20110802
  Receipt Date: 20110719
  Transmission Date: 20111222
  Serious: Yes (Death)
  Sender: FDA-Public Use
  Company Number: TPA2011A04220

PATIENT
  Age: 66 Year
  Sex: Female

DRUGS (3)
  1. PREVACID [Suspect]
     Dosage: ORAL
     Route: 048
  2. PANCREATIC ENZYMES (PANCRELIPASE) [Concomitant]
  3. GAS-X (SIMETICONE) [Suspect]
     Indication: GASTRIC DISORDER
     Dosage: 80 MG, 80 MG, 8-10 DAILY, ORAL
     Route: 048

REACTIONS (1)
  - DEATH [None]
